FAERS Safety Report 17115725 (Version 2)
Quarter: 2019Q4

REPORT INFORMATION
  Report Type: Report from Study
  Country: IN (occurrence: IN)
  Receive Date: 20191205
  Receipt Date: 20191206
  Transmission Date: 20200122
  Serious: Yes (Other)
  Sender: FDA-Public Use
  Company Number: PHHY2017IN192439

PATIENT
  Age: 46 Year
  Sex: Male

DRUGS (1)
  1. GLIVEC [Suspect]
     Active Substance: IMATINIB MESYLATE
     Indication: CHRONIC MYELOID LEUKAEMIA
     Dosage: 400 MG, UNK
     Route: 065

REACTIONS (15)
  - Acrochordon [Unknown]
  - Arthralgia [Unknown]
  - Sphincter of Oddi dysfunction [Unknown]
  - Dyschezia [Unknown]
  - Abdominal pain [Unknown]
  - Swelling [Recovering/Resolving]
  - Hepatomegaly [Unknown]
  - Peripheral swelling [Unknown]
  - Oedema [Unknown]
  - Pruritus [Unknown]
  - Pain in extremity [Unknown]
  - Haemorrhoids [Unknown]
  - Deep vein thrombosis [Unknown]
  - Back pain [Unknown]
  - Pyrexia [Unknown]

NARRATIVE: CASE EVENT DATE: 20170724
